FAERS Safety Report 8106286 (Version 2)
Quarter: 2013Q2

REPORT INFORMATION
  Report Type: Spontaneous
  Country: IT (occurrence: IT)
  Receive Date: 20110825
  Receipt Date: 20130404
  Transmission Date: 20140414
  Serious: Yes (Death)
  Sender: FDA-Public Use
  Company Number: PHHY2011IT75294

PATIENT
  Age: 57 Year
  Sex: Male

DRUGS (4)
  1. EVEROLIMUS [Suspect]
     Indication: LIVER TRANSPLANT
     Dosage: 1.75 MG, BID
  2. SORAFENIB [Suspect]
     Dosage: 400 MG
  3. PREDNISOLONE [Concomitant]
     Dosage: UNK UKN, UNK
  4. ATG RABBIT [Concomitant]
     Dosage: UNK UKN, UNK

REACTIONS (2)
  - Gastrointestinal haemorrhage [Fatal]
  - Melaena [Fatal]
